FAERS Safety Report 4495261-7 (Version None)
Quarter: 2004Q4

REPORT INFORMATION
  Report Type: 
  Country: None (occurrence: None)
  Receive Date: 20041103
  Receipt Date: 20041022
  Transmission Date: 20050328
  Serious: Yes (Hospitalization)
  Sender: FDA-Public Use
  Company Number: 200415146BCC

PATIENT
  Age: 79 Year
  Sex: Male
  Weight: 79.3795 kg

DRUGS (7)
  1. ALEVE [Suspect]
     Dosage: 440 MG, TOTAL DIALY, ORAL
     Route: 048
     Dates: start: 20041001
  2. ASPIRIN [Suspect]
  3. PLAVIX [Concomitant]
  4. HYZAAR [Concomitant]
  5. IMDUR [Concomitant]
  6. PLETAL [Concomitant]
  7. ZOCOR [Concomitant]

REACTIONS (2)
  - ABDOMINAL DISTENSION [None]
  - GASTRIC HAEMORRHAGE [None]
